FAERS Safety Report 5522724-5 (Version None)
Quarter: 2007Q4

REPORT INFORMATION
  Report Type: 
  Country: None (occurrence: None)
  Receive Date: 20071120
  Receipt Date: 20071120
  Transmission Date: 20080405
  Serious: Yes (Death)
  Sender: FDA-Public Use
  Company Number: JP-BOEHRINGER INGELHEIM PHARMACEUTICALS, INC.-2007-BP-24762NB

PATIENT
  Sex: Female
  Weight: 53.5 kg

DRUGS (11)
  1. MICARDIS [Suspect]
     Indication: HYPERTENSION
     Route: 048
     Dates: start: 20061004, end: 20070517
  2. BASEN [Concomitant]
     Route: 048
     Dates: start: 20020701
  3. ACINON [Concomitant]
     Route: 048
     Dates: start: 20011101
  4. TOFRANIL [Concomitant]
     Route: 048
     Dates: start: 20000101
  5. EBASTEL [Concomitant]
     Route: 048
     Dates: start: 20000601
  6. MUCOSAL-L [Concomitant]
     Route: 048
     Dates: start: 20040601
  7. NARCARICIN [Concomitant]
     Route: 048
     Dates: start: 20040601
  8. ASPIRIN [Concomitant]
     Route: 048
     Dates: start: 20020601
  9. NEUFAN [Concomitant]
     Route: 048
     Dates: start: 20040601
  10. MEVALOTIN [Concomitant]
     Route: 048
  11. AMLODIN [Concomitant]
     Indication: HYPERTENSION
     Route: 048

REACTIONS (1)
  - SUDDEN DEATH [None]
